FAERS Safety Report 8898758 (Version 2)
Quarter: 2012Q4

REPORT INFORMATION
  Report Type: 
  Country: US (occurrence: US)
  Receive Date: 20121109
  Receipt Date: 20121115
  Transmission Date: 20130627
  Serious: Yes (Hospitalization)
  Sender: FDA-Public Use
  Company Number: US-PFIZER INC-2012278477

PATIENT
  Age: 57 Year
  Sex: Male
  Weight: 104 kg

DRUGS (10)
  1. LIPITOR [Suspect]
     Indication: HIGH CHOLESTEROL
     Dosage: 10 mg, daily
     Route: 048
     Dates: end: 201211
  2. TOPROL [Concomitant]
     Indication: BLOOD PRESSURE HIGH
     Dosage: 25 mg, 2x/day
  3. GLUCOTROL XL [Concomitant]
     Indication: DIABETES
     Dosage: 5 mg, daily
     Route: 048
  4. ACTOPLUS MET [Concomitant]
     Indication: DIABETES
     Dosage: [pioglitazone hydrochloride 15mg]/ [metformin hydrochloride 500 mg], daily
  5. SYNTHROID [Concomitant]
     Indication: THYROID DISORDER
     Dosage: 50 ug, daily
  6. ZYRTEC [Concomitant]
     Indication: ALLERGY
     Dosage: 10 mg, daily
  7. ASPIRIN [Concomitant]
     Dosage: 81 mg, daily
  8. LOVAZA [Concomitant]
     Dosage: 1000 mg, 2x/day
  9. TYLENOL [Concomitant]
     Indication: ARTHRITIS
     Dosage: 1000 mg, 3x/day
     Route: 048
  10. FOLIC ACID [Concomitant]
     Dosage: UNK

REACTIONS (1)
  - Coronary artery occlusion [Unknown]
